FAERS Safety Report 11151158 (Version 3)
Quarter: 2015Q3

REPORT INFORMATION
  Report Type: Report from Study
  Country: HK (occurrence: HK)
  Receive Date: 20150601
  Receipt Date: 20150726
  Transmission Date: 20151125
  Serious: Yes (Death, Hospitalization)
  Sender: FDA-Public Use
  Company Number: HK-B.I. PHARMACEUTICALS,INC./RIDGEFIELD-2015-BI-28234HK

PATIENT
  Age: 52 Year
  Sex: Male
  Weight: 58.5 kg

DRUGS (2)
  1. TAXOTERE [Concomitant]
     Active Substance: DOCETAXEL
     Indication: NON-SMALL CELL LUNG CANCER
     Dosage: 120 MG
     Route: 042
     Dates: start: 20150310
  2. BIBF 1120 [Suspect]
     Active Substance: NINTEDANIB
     Indication: NON-SMALL CELL LUNG CANCER
     Dosage: 400 MG
     Route: 048
     Dates: start: 20150311

REACTIONS (3)
  - Angiopathy [Fatal]
  - Respiratory failure [Unknown]
  - Infection [Unknown]

NARRATIVE: CASE EVENT DATE: 20150419
